FAERS Safety Report 7970288-9 (Version None)
Quarter: 2011Q4

REPORT INFORMATION
  Report Type: 
  Country: None (occurrence: None)
  Receive Date: 20111212
  Receipt Date: 20111005
  Transmission Date: 20120403
  Serious: Yes (Hospitalization, Other)
  Sender: FDA-Public Use
  Company Number: US-BAYER-2011-082613

PATIENT
  Age: 23 Year
  Sex: Female
  Weight: 79.365 kg

DRUGS (1)
  1. YAZ [Suspect]
     Dosage: UNK
     Dates: start: 20060701, end: 20061201

REACTIONS (2)
  - BILIARY COLIC [None]
  - CHOLECYSTECTOMY [None]
